FAERS Safety Report 15747664 (Version 2)
Quarter: 2019Q1

REPORT INFORMATION
  Report Type: Report from Study
  Country: None (occurrence: US)
  Receive Date: 20181220
  Receipt Date: 20190111
  Transmission Date: 20190417
  Serious: Yes (Other)
  Sender: FDA-Public Use
  Company Number: US-ABBVIE-18K-163-2593251-00

PATIENT
  Age: 36 Year
  Sex: Female

DRUGS (2)
  1. HUMIRA [Suspect]
     Active Substance: ADALIMUMAB
     Indication: COLITIS ULCERATIVE
     Dosage: DAY 1
     Route: 058
     Dates: start: 201812, end: 201812
  2. HUMIRA [Suspect]
     Active Substance: ADALIMUMAB
     Dosage: DAY 15
     Route: 058

REACTIONS (13)
  - Decreased appetite [Recovering/Resolving]
  - Nasopharyngitis [Unknown]
  - Dizziness [Unknown]
  - Lip discolouration [Unknown]
  - Nausea [Unknown]
  - Loss of consciousness [Recovered/Resolved]
  - Haematochezia [Recovering/Resolving]
  - Skin discolouration [Unknown]
  - Nausea [Recovering/Resolving]
  - Injection site pain [Unknown]
  - Abdominal pain [Recovering/Resolving]
  - Diarrhoea [Recovering/Resolving]
  - Pyrexia [Recovering/Resolving]

NARRATIVE: CASE EVENT DATE: 201812
